FAERS Safety Report 10853085 (Version 1)
Quarter: 2015Q1

REPORT INFORMATION
  Report Type: Spontaneous
  Country: US (occurrence: US)
  Receive Date: 20150222
  Receipt Date: 20150222
  Transmission Date: 20150721
  Serious: No
  Sender: FDA-Public Use
  Company Number: US-ALLERGAN-1410533US

PATIENT
  Age: 36 Year
  Sex: Female

DRUGS (3)
  1. BOTOX [Suspect]
     Active Substance: ONABOTULINUMTOXINA
     Indication: SKIN WRINKLING
     Dosage: 20 UNITS, SINGLE
     Route: 030
     Dates: start: 20140519, end: 20140519
  2. JUVEDERM ULTRA PLUS [Suspect]
     Active Substance: HYALURONIC ACID\LIDOCAINE HYDROCHLORIDE
     Indication: SKIN WRINKLING
  3. JUVEDERM ULTRA PLUS [Suspect]
     Active Substance: HYALURONIC ACID\LIDOCAINE HYDROCHLORIDE
     Indication: SKIN WRINKLING

REACTIONS (2)
  - Swelling face [Unknown]
  - Erythema [Unknown]

NARRATIVE: CASE EVENT DATE: 20140519
